FAERS Safety Report 6994306-X (Version None)
Quarter: 2010Q3

REPORT INFORMATION
  Report Type: 
  Country: None (occurrence: None)
  Receive Date: 20100917
  Receipt Date: 20100910
  Transmission Date: 20110219
  Serious: Yes (Other)
  Sender: FDA-Public Use
  Company Number: ZW-ABBOTT-10P-190-0670500-00

PATIENT

DRUGS (6)
  1. ALUVIA TABLETS [Suspect]
     Indication: HIV INFECTION
     Route: 048
     Dates: start: 20100712, end: 20100810
  2. RALTEGRAVIR [Concomitant]
     Indication: HIV INFECTION
     Dates: start: 20100712, end: 20100809
  3. STAVUDINE [Concomitant]
     Indication: HIV INFECTION
     Dates: start: 20060615, end: 20100712
  4. LAMIVUDINE [Concomitant]
     Indication: HIV INFECTION
     Dates: start: 20060615, end: 20100712
  5. NEVIRAPINE [Concomitant]
     Indication: HIV INFECTION
     Dates: start: 20060615, end: 20100712
  6. COTRIM [Concomitant]
     Indication: PRODUCT USED FOR UNKNOWN INDICATION
     Dates: start: 20060615

REACTIONS (3)
  - HEPATIC ENZYME INCREASED [None]
  - LIP SWELLING [None]
  - RASH PUSTULAR [None]
